FAERS Safety Report 20887291 (Version 6)
Quarter: 2023Q1

REPORT INFORMATION
  Report Type: Report from Study
  Country: EG (occurrence: EG)
  Receive Date: 20220528
  Receipt Date: 20230310
  Transmission Date: 20230417
  Serious: Yes (Other)
  Sender: FDA-Public Use
  Company Number: EG-NOVARTISPH-NVSC2022EG118069

PATIENT
  Age: 61 Year
  Sex: Female

DRUGS (12)
  1. GILENYA [Suspect]
     Active Substance: FINGOLIMOD HYDROCHLORIDE
     Indication: Multiple sclerosis
     Dosage: 1 DOSAGE FORM, QD
     Route: 048
     Dates: start: 202204
  2. VITAMIN D3 [Concomitant]
     Active Substance: CHOLECALCIFEROL
     Indication: Vitamin supplementation
     Dosage: 0.5 MG, QD
     Route: 048
     Dates: start: 2010
  3. CRESTOR [Concomitant]
     Active Substance: ROSUVASTATIN CALCIUM
     Indication: Blood cholesterol abnormal
     Dosage: 1 DOSAGE FORM, QD
     Route: 048
     Dates: start: 2017
  4. CRESTOR [Concomitant]
     Active Substance: ROSUVASTATIN CALCIUM
     Indication: Hypercholesterolaemia
     Dosage: 1 DOSAGE FORM, QD
     Route: 048
     Dates: start: 2018
  5. IRON [Concomitant]
     Active Substance: IRON
     Indication: Anaemia prophylaxis
     Dosage: 1 DOSAGE FORM, QD
     Route: 065
     Dates: start: 2010
  6. VITAMIN B12 [Concomitant]
     Active Substance: CYANOCOBALAMIN
     Indication: Neuralgia
     Dosage: UNK UNK, QD
     Route: 048
     Dates: start: 2020
  7. VITAMIN B12 [Concomitant]
     Active Substance: CYANOCOBALAMIN
     Dosage: UNK UNK, QW
     Route: 030
     Dates: start: 2020
  8. CELEBREX [Concomitant]
     Active Substance: CELECOXIB
     Indication: Arthralgia
     Dosage: 1 DOSAGE FORM, QD
     Route: 048
  9. ANTI-COX II [Concomitant]
     Indication: Arthralgia
     Dosage: 1 DOSAGE FORM, QD
     Route: 048
     Dates: start: 202204
  10. VITA B [Concomitant]
     Indication: Supplementation therapy
     Dosage: ONE YEAR AND HALF, ONCE OR TWICE PER WEEK
     Route: 065
  11. VITAMIN D NOS [Concomitant]
     Active Substance: VITAMIN D NOS
     Indication: Supplementation therapy
     Dosage: 1 DOSAGE FORM, QD
     Route: 065
     Dates: start: 2014
  12. TRENTAL [Concomitant]
     Active Substance: PENTOXIFYLLINE
     Indication: Cardiovascular disorder
     Dosage: UNK, BID, (STARTED FROM A MONTH AND A HALF)
     Route: 065

REACTIONS (26)
  - Musculoskeletal disorder [Not Recovered/Not Resolved]
  - Movement disorder [Unknown]
  - Multiple sclerosis relapse [Not Recovered/Not Resolved]
  - Balance disorder [Not Recovered/Not Resolved]
  - Blindness unilateral [Recovered/Resolved]
  - Optic nerve injury [Recovered/Resolved]
  - Diarrhoea [Recovering/Resolving]
  - Dizziness [Not Recovered/Not Resolved]
  - Headache [Not Recovered/Not Resolved]
  - Nervousness [Recovering/Resolving]
  - Dyspnoea [Not Recovered/Not Resolved]
  - Disturbance in attention [Recovering/Resolving]
  - Hypoaesthesia [Not Recovered/Not Resolved]
  - Spinal disorder [Recovering/Resolving]
  - Sciatic nerve neuropathy [Recovering/Resolving]
  - Amnesia [Recovering/Resolving]
  - Erythema [Not Recovered/Not Resolved]
  - White blood cell count decreased [Unknown]
  - Pruritus [Not Recovered/Not Resolved]
  - Back pain [Not Recovered/Not Resolved]
  - Hypotension [Not Recovered/Not Resolved]
  - Anisocytosis [Not Recovered/Not Resolved]
  - Hypochromic anaemia [Unknown]
  - Diastolic dysfunction [Unknown]
  - Cough [Not Recovered/Not Resolved]
  - Drug ineffective [Not Recovered/Not Resolved]

NARRATIVE: CASE EVENT DATE: 20220401
